FAERS Safety Report 4978634-5 (Version None)
Quarter: 2006Q2

REPORT INFORMATION
  Report Type: 
  Country: None (occurrence: None)
  Receive Date: 20060420
  Receipt Date: 20051010
  Transmission Date: 20061013
  Serious: Yes (Hospitalization, Other)
  Sender: FDA-Public Use
  Company Number: US-MERCK-0510USA06621

PATIENT
  Age: 69 Year
  Sex: Male
  Weight: 100 kg

DRUGS (2)
  1. VIOXX [Suspect]
     Indication: GOUT
     Route: 048
  2. VIOXX [Suspect]
     Route: 048
     Dates: start: 20020517, end: 20021023

REACTIONS (12)
  - ARTHROPATHY [None]
  - ASTHENIA [None]
  - CARDIAC DISORDER [None]
  - CARDIAC OPERATION [None]
  - FISTULA [None]
  - HAEMORRHOIDS [None]
  - HEADACHE [None]
  - NAUSEA [None]
  - NERVOUS SYSTEM DISORDER [None]
  - POLYP [None]
  - TRANSIENT ISCHAEMIC ATTACK [None]
  - VISION BLURRED [None]
